FAERS Safety Report 8053015 (Version 10)
Quarter: 2013Q1

REPORT INFORMATION
  Report Type: Spontaneous
  Country: BR (occurrence: BR)
  Receive Date: 20110725
  Receipt Date: 20130329
  Transmission Date: 20140127
  Serious: Yes (Other)
  Sender: FDA-Public Use
  Company Number: BR-GENZYME-POMP-1001663

PATIENT
  Age: 4 Year
  Sex: Male
  Weight: 20 kg

DRUGS (3)
  1. MYOZYME [Suspect]
     Indication: GLYCOGEN STORAGE DISEASE TYPE II
     Dosage: 40 MG/KG, Q2W
     Route: 042
  2. MYOZYME [Suspect]
     Dosage: 20 MG/KG, Q2W
     Route: 042
     Dates: start: 20070914
  3. DEXTROSE W [Concomitant]
     Indication: MEDICATION DILUTION
     Route: 042

REACTIONS (7)
  - Motor dysfunction [Not Recovered/Not Resolved]
  - Cardiac failure [Not Recovered/Not Resolved]
  - Convulsion [Unknown]
  - Muscular weakness [Not Recovered/Not Resolved]
  - Disease progression [Unknown]
  - Wrong technique in drug usage process [Unknown]
  - General physical health deterioration [Not Recovered/Not Resolved]
